FAERS Safety Report 8976860 (Version 1)
Quarter: 2012Q4

REPORT INFORMATION
  Report Type: 
  Country: US (occurrence: US)
  Receive Date: 20121220
  Receipt Date: 20121220
  Transmission Date: 20130627
  Serious: No
  Sender: FDA-Public Use
  Company Number: US-GLAXOSMITHKLINE-A0956920A

PATIENT
  Sex: Male

DRUGS (3)
  1. PROPAFENONE HYDROCHLORIDE [Suspect]
     Dosage: 150MG Three times per day
     Route: 048
  2. PRADAXA [Concomitant]
  3. SPIRONOLACTONE [Concomitant]

REACTIONS (1)
  - Rash pruritic [Unknown]
